FAERS Safety Report 9054497 (Version 3)
Quarter: 2013Q2

REPORT INFORMATION
  Report Type: Spontaneous
  Country: US (occurrence: US)
  Receive Date: 20130208
  Receipt Date: 20130513
  Transmission Date: 20140414
  Serious: Yes (Other)
  Sender: FDA-Public Use
  Company Number: US-GLAXOSMITHKLINE-A0993676A

PATIENT
  Sex: Female
  Weight: 63.6 kg

DRUGS (5)
  1. PAXIL [Suspect]
     Indication: FATIGUE
     Route: 048
     Dates: start: 20120410
  2. ZOLOFT [Suspect]
     Indication: SLEEP DISORDER
     Dosage: 50MGD PER DAY
     Route: 048
     Dates: start: 1994, end: 2012
  3. SLEEPING PILL [Concomitant]
  4. FLURAZEPAM [Concomitant]
     Indication: SLEEP DISORDER
     Dates: start: 1989
  5. VITAMIN [Concomitant]

REACTIONS (15)
  - Suicidal ideation [Unknown]
  - Insomnia [Unknown]
  - Fatigue [Unknown]
  - Abnormal dreams [Unknown]
  - Emotional poverty [Unknown]
  - Off label use [Unknown]
  - Adverse drug reaction [Unknown]
  - Emotional disorder [Unknown]
  - Crying [Unknown]
  - Soliloquy [Unknown]
  - Anxiety [Unknown]
  - Panic reaction [Unknown]
  - Drug ineffective [Unknown]
  - Emotional distress [Unknown]
  - Panic attack [Unknown]
